FAERS Safety Report 10238303 (Version 2)
Quarter: 2014Q2

REPORT INFORMATION
  Report Type: Spontaneous
  Country: ES (occurrence: ES)
  Receive Date: 20140616
  Receipt Date: 20140616
  Transmission Date: 20141212
  Serious: Yes (Death, Hospitalization)
  Sender: FDA-Public Use
  Company Number: ES-JNJFOC-20140600377

PATIENT
  Age: 75 Year
  Sex: Female

DRUGS (6)
  1. XARELTO [Suspect]
     Indication: CEREBROVASCULAR ACCIDENT PROPHYLAXIS
     Route: 048
     Dates: start: 20130114, end: 20140516
  2. ATORVASTATIN [Concomitant]
     Indication: HYPERLIPIDAEMIA
     Route: 048
     Dates: end: 20140516
  3. OMEPRAZOLE [Concomitant]
     Route: 048
     Dates: end: 20140516
  4. LEVETIRACETAM [Concomitant]
     Route: 048
     Dates: end: 20140516
  5. BISOPROLOL [Concomitant]
     Indication: CARDIAC FAILURE
     Route: 048
     Dates: end: 20140516
  6. BISOPROLOL [Concomitant]
     Indication: HYPERTENSION
     Route: 048
     Dates: end: 20140516

REACTIONS (3)
  - Cerebral haemorrhage [Fatal]
  - Subdural haematoma [Fatal]
  - Blood pressure increased [Fatal]
